FAERS Safety Report 18042209 (Version 1)
Quarter: 2020Q3

REPORT INFORMATION
  Report Type: Spontaneous
  Country: JP (occurrence: JP)
  Receive Date: 20200720
  Receipt Date: 20200720
  Transmission Date: 20201103
  Serious: Yes (Hospitalization)
  Sender: FDA-Public Use
  Company Number: JP-TEVA-2020-JP-1803590

PATIENT
  Age: 79 Year
  Sex: Male

DRUGS (2)
  1. IMATINIB MESYLATE. [Suspect]
     Active Substance: IMATINIB MESYLATE
     Indication: CHRONIC MYELOID LEUKAEMIA
     Dosage: 300 MILLIGRAM DAILY;
     Route: 065
  2. IMATINIB MESYLATE. [Suspect]
     Active Substance: IMATINIB MESYLATE
     Indication: CHRONIC MYELOID LEUKAEMIA
     Dosage: 400 MILLIGRAM DAILY;
     Route: 065
     Dates: start: 201410

REACTIONS (8)
  - Acute kidney injury [Unknown]
  - Epstein-Barr virus associated lymphoproliferative disorder [Recovered/Resolved]
  - Staphylococcal bacteraemia [Unknown]
  - Cytomegalovirus infection reactivation [Unknown]
  - Ascites [Unknown]
  - Disseminated intravascular coagulation [Unknown]
  - Cardiac failure congestive [Unknown]
  - Thrombocytopenia [Unknown]
